FAERS Safety Report 20217318 (Version 2)
Quarter: 2023Q1

REPORT INFORMATION
  Report Type: Spontaneous
  Country: US (occurrence: US)
  Receive Date: 20211222
  Receipt Date: 20230130
  Transmission Date: 20230417
  Serious: Yes (Other)
  Sender: FDA-Public Use
  Company Number: US-PFIZER INC-202101772528

PATIENT
  Age: 88 Year
  Sex: Male

DRUGS (1)
  1. VYNDAMAX [Suspect]
     Active Substance: TAFAMIDIS
     Indication: Amyloidosis
     Dosage: 61 MG

REACTIONS (20)
  - Atrial fibrillation [Unknown]
  - Plasma cell myeloma [Unknown]
  - Pericardial effusion [Unknown]
  - Cardiac failure congestive [Unknown]
  - Rectal haemorrhage [Unknown]
  - Prostate cancer [Unknown]
  - Polyneuropathy [Unknown]
  - Hypothyroidism [Unknown]
  - Amyloidosis senile [Unknown]
  - Orthostatic hypotension [Unknown]
  - Autonomic nervous system imbalance [Unknown]
  - Asthma [Unknown]
  - Atrial flutter [Unknown]
  - Gastritis [Unknown]
  - Spinal claudication [Unknown]
  - Monoclonal gammopathy [Unknown]
  - Obstructive sleep apnoea syndrome [Unknown]
  - Hypertension [Unknown]
  - Hyperlipidaemia [Unknown]
  - Off label use [Unknown]
